FAERS Safety Report 19318358 (Version 1)
Quarter: 2021Q2

REPORT INFORMATION
  Report Type: Spontaneous
  Country: US (occurrence: US)
  Receive Date: 20210527
  Receipt Date: 20210527
  Transmission Date: 20210717
  Serious: Yes (Hospitalization)
  Sender: FDA-Public Use
  Company Number: None

PATIENT
  Age: 72 Year
  Sex: Female
  Weight: 98 kg

DRUGS (1)
  1. CASIVIRIMAB WITH IMDEVIMAB [Suspect]
     Active Substance: CASIRIVIMAB\IMDEVIMAB
     Indication: COVID-19
     Dosage: ?          OTHER FREQUENCY:ONCE;?
     Route: 042
     Dates: start: 20210519, end: 20210519

REACTIONS (8)
  - Lung opacity [None]
  - Leukopenia [None]
  - Fibrin D dimer increased [None]
  - Blood pressure increased [None]
  - Infusion related reaction [None]
  - Lymphadenopathy mediastinal [None]
  - Urticaria [None]
  - Dyspnoea [None]

NARRATIVE: CASE EVENT DATE: 20210519
